FAERS Safety Report 5835933-2 (Version None)
Quarter: 2008Q3

REPORT INFORMATION
  Report Type: 
  Country: None (occurrence: None)
  Receive Date: 20080806
  Receipt Date: 20080728
  Transmission Date: 20090109
  Serious: Yes (Hospitalization, Disabling)
  Sender: FDA-Public Use
  Company Number: KR-ABBOTT-08P-286-0459236-00

PATIENT
  Sex: Female

DRUGS (5)
  1. TEVETEN [Suspect]
     Indication: HYPERTENSION
     Route: 048
     Dates: start: 20070602, end: 20070828
  2. AMLODIPINE [Concomitant]
     Indication: HYPERTENSION
     Route: 048
     Dates: start: 20070602, end: 20070828
  3. GLIMEPIRIDE [Concomitant]
     Indication: DIABETES MELLITUS
     Route: 048
     Dates: start: 20070602, end: 20070828
  4. NICERGOLINE [Concomitant]
     Indication: CEREBROVASCULAR DISORDER
     Route: 048
     Dates: start: 20070602, end: 20070828
  5. MEMANTINE HCL [Concomitant]
     Indication: DEMENTIA
     Route: 048
     Dates: start: 20070602, end: 20070828

REACTIONS (3)
  - ARTHRITIS [None]
  - BRADYCARDIA [None]
  - DEMENTIA [None]
